FAERS Safety Report 16013868 (Version 5)
Quarter: 2020Q3

REPORT INFORMATION
  Report Type: Report from Study
  Country: JP (occurrence: JP)
  Receive Date: 20190227
  Receipt Date: 20200916
  Transmission Date: 20201102
  Serious: Yes (Hospitalization, Other)
  Sender: FDA-Public Use
  Company Number: JP-PFIZER INC-2019027749

PATIENT
  Age: 47 Year
  Sex: Male
  Weight: 64.3 kg

DRUGS (1)
  1. LORLATINIB [Suspect]
     Active Substance: LORLATINIB
     Indication: NON-SMALL CELL LUNG CANCER
     Dosage: 100 MG, 1X/DAY
     Route: 048
     Dates: start: 20181212, end: 20181215

REACTIONS (2)
  - Interstitial lung disease [Recovering/Resolving]
  - Neoplasm progression [Unknown]
